FAERS Safety Report 8979612 (Version 1)
Quarter: 2012Q4

REPORT INFORMATION
  Report Type: 
  Country: US (occurrence: US)
  Receive Date: 20121221
  Receipt Date: 20121221
  Transmission Date: 20130627
  Serious: Yes (Death)
  Sender: FDA-Public Use
  Company Number: US-TEVA-377005USA

PATIENT
  Age: 64 Year
  Sex: Female

DRUGS (2)
  1. HYDROXYCHLOROQUINE [Suspect]
     Indication: RHEUMATOID ARTHRITIS
     Dosage: 400mg daily
     Route: 048
  2. HYDROXYCHLOROQUINE [Suspect]
     Indication: RHEUMATOID ARTHRITIS
     Dosage: 200mg daily
     Route: 048

REACTIONS (5)
  - Cardiomyopathy [Fatal]
  - Respiratory failure [Fatal]
  - Atrial fibrillation [Fatal]
  - Sick sinus syndrome [Fatal]
  - Vasculitis necrotising [Unknown]
